FAERS Safety Report 12384774 (Version 1)
Quarter: 2016Q2

REPORT INFORMATION
  Report Type: Spontaneous
  Country: US (occurrence: US)
  Receive Date: 20160519
  Receipt Date: 20160519
  Transmission Date: 20160815
  Serious: Yes (Other)
  Sender: FDA-Public Use
  Company Number: PHHY2016US062240

PATIENT
  Sex: Female

DRUGS (1)
  1. GILENYA [Suspect]
     Active Substance: FINGOLIMOD HYDROCHLORIDE
     Indication: RELAPSING-REMITTING MULTIPLE SCLEROSIS
     Dosage: UNK
     Route: 048

REACTIONS (9)
  - Rebound effect [Unknown]
  - Musculoskeletal pain [Unknown]
  - Back pain [Unknown]
  - Muscular weakness [Unknown]
  - Constipation [Unknown]
  - Fatigue [Unknown]
  - Breast cancer recurrent [Unknown]
  - Nausea [Unknown]
  - Multiple sclerosis relapse [Unknown]
